FAERS Safety Report 11858653 (Version 1)
Quarter: 2015Q4

REPORT INFORMATION
  Report Type: Other
  Country: FR (occurrence: FR)
  Receive Date: 20151222
  Receipt Date: 20151222
  Transmission Date: 20160305
  Serious: Yes (Other)
  Sender: FDA-Public Use
  Company Number: FR-LUPIN PHARMACEUTICALS INC.-2015-04149

PATIENT
  Age: 59 Year
  Sex: Male

DRUGS (1)
  1. MOXIFLOXACIN. [Suspect]
     Active Substance: MOXIFLOXACIN
     Indication: PROSTATITIS
     Dosage: 400 MG
     Route: 065

REACTIONS (1)
  - Tendon rupture [Unknown]
